FAERS Safety Report 8156257-7 (Version None)
Quarter: 2012Q1

REPORT INFORMATION
  Report Type: 
  Country: None (occurrence: None)
  Receive Date: 20120216
  Receipt Date: 20120202
  Transmission Date: 20120608
  Serious: Yes (Life-Threatening)
  Sender: FDA-Public Use
  Company Number: FK201200312

PATIENT
  Age: 65 Year
  Sex: Male

DRUGS (4)
  1. FENTANYL [Concomitant]
  2. ONDANSETRON [Suspect]
     Indication: GENERAL ANAESTHESIA
     Dosage: 4 MG, INTRAVENOUS(NOT OTHERWISE SPECIFIED)
     Route: 042
     Dates: start: 20111118, end: 20111118
  3. ALBUTEROL SULFATE [Concomitant]
  4. BECLOMETHASONE DIPROPIONATE [Concomitant]

REACTIONS (4)
  - HYPOTENSION [None]
  - LOSS OF CONSCIOUSNESS [None]
  - TRYPTASE INCREASED [None]
  - THROAT IRRITATION [None]
